FAERS Safety Report 4384631-3 (Version None)
Quarter: 2004Q2

REPORT INFORMATION
  Report Type: 
  Country: None (occurrence: None)
  Receive Date: 20040625
  Receipt Date: 20030930
  Transmission Date: 20050107
  Serious: No
  Sender: FDA-Public Use
  Company Number: US-BRISTOL-MYERS SQUIBB COMPANY-12397303

PATIENT
  Age: 77 Year
  Sex: Female
  Weight: 73 kg

DRUGS (4)
  1. SINEMET [Suspect]
     Indication: PARKINSON'S DISEASE
     Dosage: CONSUMER HAS BEEN TAKING FOR ^A YEAR OR TWO^
     Route: 048
  2. AMARYL [Concomitant]
  3. TIAZAC [Concomitant]
  4. ZETIA [Concomitant]

REACTIONS (7)
  - ALOPECIA [None]
  - ASTHENIA [None]
  - CONSTIPATION [None]
  - DIZZINESS [None]
  - HAIR GROWTH ABNORMAL [None]
  - NAUSEA [None]
  - POLLAKIURIA [None]
